FAERS Safety Report 11379352 (Version 4)
Quarter: 2016Q2

REPORT INFORMATION
  Report Type: Report from Study
  Country: GB (occurrence: GB)
  Receive Date: 20150813
  Receipt Date: 20160407
  Transmission Date: 20160815
  Serious: Yes (Hospitalization)
  Sender: FDA-Public Use
  Company Number: GB-BRISTOL-MYERS SQUIBB COMPANY-BMS-2015-052236

PATIENT
  Age: 80 Year
  Sex: Male
  Weight: 55 kg

DRUGS (3)
  1. NIVOLUMAB [Suspect]
     Active Substance: NIVOLUMAB
     Dosage: 160 MG, UNK
     Route: 042
     Dates: start: 20150710, end: 20150710
  2. NIVOLUMAB [Suspect]
     Active Substance: NIVOLUMAB
     Dosage: 160 MG, Q2WK
     Route: 042
     Dates: start: 20150626, end: 20150626
  3. NIVOLUMAB [Suspect]
     Active Substance: NIVOLUMAB
     Indication: MALIGNANT MELANOMA
     Dosage: 165 MG, Q2WK
     Route: 042
     Dates: start: 20150612, end: 20150612

REACTIONS (1)
  - Syncope [Recovered/Resolved]

NARRATIVE: CASE EVENT DATE: 20150730
